FAERS Safety Report 4595786-X (Version None)
Quarter: 2005Q1

REPORT INFORMATION
  Report Type: 
  Country: None (occurrence: None)
  Receive Date: 20050224
  Receipt Date: 20050210
  Transmission Date: 20050727
  Serious: Yes (Hospitalization)
  Sender: FDA-Public Use
  Company Number: 2004AP05403

PATIENT
  Age: 67 Year
  Sex: Male
  Weight: 60.8 kg

DRUGS (1)
  1. ROSUVASTATIN CALCIUM [Suspect]
     Indication: HYPERTRIGLYCERIDAEMIA
     Dosage: 20 MG DAILY PO
     Route: 048
     Dates: start: 20040713, end: 20040906

REACTIONS (1)
  - BENIGN SALIVARY GLAND NEOPLASM [None]
